FAERS Safety Report 18269573 (Version 1)
Quarter: 2020Q3

REPORT INFORMATION
  Report Type: Spontaneous
  Country: US (occurrence: US)
  Receive Date: 20200915
  Receipt Date: 20200915
  Transmission Date: 20201103
  Serious: Yes (Other)
  Sender: FDA-Public Use
  Company Number: US-INSUD PHARMA-2008US00199

PATIENT

DRUGS (6)
  1. ACYCLOVIR. [Suspect]
     Active Substance: ACYCLOVIR
     Dosage: 10 MG/KG/DAY; THERAPY COMPLETED
     Route: 042
  2. CEFEPIME [Concomitant]
     Active Substance: CEFEPIME HYDROCHLORIDE
     Indication: MEDIASTINITIS
  3. TACROLIMUS. [Concomitant]
     Active Substance: TACROLIMUS
     Indication: IMMUNOSUPPRESSANT DRUG THERAPY
     Dosage: MAINTENANCE REGIMEN
  4. PREDNISONE. [Concomitant]
     Active Substance: PREDNISONE
     Indication: IMMUNOSUPPRESSANT DRUG THERAPY
     Dosage: MAINTENANCE REGIMEN
  5. ACYCLOVIR. [Suspect]
     Active Substance: ACYCLOVIR
     Indication: POLYNEUROPATHY
     Dosage: 10 MG/KG EVERY 8 HOURS; DOSE DECREASED
     Route: 042
  6. MYCOPHENOLATE MOFETIL. [Concomitant]
     Active Substance: MYCOPHENOLATE MOFETIL
     Indication: IMMUNOSUPPRESSANT DRUG THERAPY
     Dosage: MAINTENANCE REGIMEN

REACTIONS (11)
  - Mental impairment [Recovered/Resolved]
  - Neurotoxicity [Recovered/Resolved]
  - Encephalopathy [Recovered/Resolved]
  - Cerebrovascular accident [Unknown]
  - Confusional state [Recovered/Resolved]
  - Mental status changes [Recovered/Resolved]
  - Slow response to stimuli [Recovered/Resolved]
  - Disorientation [Recovered/Resolved]
  - Depressed level of consciousness [Recovered/Resolved]
  - Ketoacidosis [Unknown]
  - Hallucination [Recovered/Resolved]
